FAERS Safety Report 18457899 (Version 2)
Quarter: 2020Q4

REPORT INFORMATION
  Report Type: Spontaneous
  Country: US (occurrence: US)
  Receive Date: 20201103
  Receipt Date: 20201203
  Transmission Date: 20210114
  Serious: Yes (Other)
  Sender: FDA-Public Use
  Company Number: US-PFIZER INC-2020424679

PATIENT
  Age: 73 Year
  Sex: Female

DRUGS (1)
  1. IBRANCE [Suspect]
     Active Substance: PALBOCICLIB
     Indication: BREAST CANCER FEMALE
     Dosage: 100 MG, CYCLIC, (100MG 1 CAP QD (ONCE A DAY) X 21 DAYS)
     Dates: start: 20190510, end: 20200707

REACTIONS (2)
  - Neuropathy peripheral [Recovered/Resolved]
  - Blood pressure fluctuation [Recovered/Resolved]
